FAERS Safety Report 21192074 (Version 1)
Quarter: 2022Q3

REPORT INFORMATION
  Report Type: Spontaneous
  Country: US (occurrence: US)
  Receive Date: 20220809
  Receipt Date: 20220809
  Transmission Date: 20221027
  Serious: No
  Sender: FDA-Public Use
  Company Number: US-ENDO PHARMACEUTICALS INC-2021-013520

PATIENT
  Sex: Male

DRUGS (2)
  1. TESTOPEL [Suspect]
     Active Substance: TESTOSTERONE
     Indication: Product used for unknown indication
     Dosage: UNK UNKNOWN, UNKNOWN
     Route: 065
  2. TESTOPEL [Suspect]
     Active Substance: TESTOSTERONE
     Indication: Product used for unknown indication
     Dosage: UNK UNKNOWN, UNKNOWN
     Route: 065

REACTIONS (2)
  - Nodule [Unknown]
  - Pruritus [Unknown]
